FAERS Safety Report 9373806 (Version 1)
Quarter: 2013Q2

REPORT INFORMATION
  Report Type: Spontaneous
  Country: TN (occurrence: TN)
  Receive Date: 20130628
  Receipt Date: 20130628
  Transmission Date: 20140414
  Serious: Yes (Death)
  Sender: FDA-Public Use
  Company Number: TN-ROCHE-1241673

PATIENT
  Age: 68 Year
  Sex: Male
  Weight: 60 kg

DRUGS (3)
  1. AVASTIN [Suspect]
     Indication: COLORECTAL CANCER METASTATIC
     Route: 042
     Dates: start: 20130315
  2. CAMPTO [Suspect]
     Indication: COLORECTAL CANCER METASTATIC
     Dosage: 20 MG/ML (100MG)
     Route: 042
     Dates: start: 20121207, end: 20130415
  3. 5-FU [Suspect]
     Indication: COLORECTAL CANCER METASTATIC
     Route: 042
     Dates: start: 20121207, end: 20130415

REACTIONS (2)
  - Abdominal pain [Fatal]
  - Chest pain [Recovered/Resolved]
